FAERS Safety Report 7909258 (Version 5)
Quarter: 2013Q2

REPORT INFORMATION
  Report Type: Spontaneous
  Country: US (occurrence: US)
  Receive Date: 20110421
  Receipt Date: 20130514
  Transmission Date: 20140414
  Serious: Yes (Hospitalization, Other)
  Sender: FDA-Public Use
  Company Number: US-ASTRAZENECA-2010SE14518

PATIENT
  Age: 64 Year
  Sex: Female

DRUGS (6)
  1. TOPROL XL [Suspect]
     Indication: HYPERTENSION
     Route: 048
  2. TOPROL XL [Suspect]
     Indication: HYPERTENSION
     Route: 048
  3. TOPROL XL [Suspect]
     Indication: HYPERTENSION
     Route: 048
  4. TOPROL XL [Suspect]
     Indication: HYPERTENSION
     Route: 048
  5. METOPROLOL TARTRATE [Suspect]
     Route: 065
  6. METOPROLOL TARTRATE [Suspect]
     Dosage: EXTRA TABLET
     Route: 065

REACTIONS (12)
  - Hypertension [Unknown]
  - Malaise [Unknown]
  - Kidney infection [Unknown]
  - Staphylococcal infection [Unknown]
  - Limb discomfort [Unknown]
  - Adverse event [Unknown]
  - Blood pressure increased [Unknown]
  - Atrial fibrillation [Unknown]
  - Blood pressure decreased [Unknown]
  - Cardiac disorder [Unknown]
  - Panic attack [Unknown]
  - Drug effect incomplete [Unknown]
